FAERS Safety Report 8726477 (Version 4)
Quarter: 2012Q4

REPORT INFORMATION
  Report Type: 
  Country: JP (occurrence: JP)
  Receive Date: 20120816
  Receipt Date: 20121112
  Transmission Date: 20130627
  Serious: Yes (Other)
  Sender: FDA-Public Use
  Company Number: JP-PFIZER INC-2012194134

PATIENT
  Age: 38 Year
  Sex: Female
  Weight: 48 kg

DRUGS (7)
  1. FARMORUBICIN [Suspect]
     Indication: BREAST CANCER
     Dosage: 150 mg, cyclic
     Route: 042
  2. DOCETAXEL [Interacting]
     Indication: BREAST CANCER
     Dosage: 100 mg, cyclic
     Dates: start: 20100615, end: 20100810
  3. PROPOFOL [Interacting]
     Indication: ANESTHESIA
     Dosage: 90 mg, 1x/day
     Dates: start: 20100915, end: 20100915
  4. FENTANYL [Interacting]
     Indication: ANESTHESIA
     Dosage: 100 ug, 4x/day
     Dates: start: 20100915, end: 20100915
  5. 5-FLUOROURACIL [Interacting]
     Indication: BREAST CANCER
     Dosage: 750 mg, 1x/day
     Dates: start: 20100223, end: 20100518
  6. CYCLOPHOSPHAMIDE [Interacting]
     Indication: BREAST CANCER
     Dosage: 750 mg, 1x/day
     Dates: start: 20100223, end: 20100518
  7. ROCURONIUM [Concomitant]
     Indication: ANESTHESIA
     Dosage: 30 mg, single

REACTIONS (5)
  - Drug interaction [Unknown]
  - Bradycardia [Recovered/Resolved]
  - Extrasystoles [Recovered/Resolved]
  - Cardiomyopathy [None]
  - Cardiotoxicity [None]
